FAERS Safety Report 17606791 (Version 2)
Quarter: 2020Q2

REPORT INFORMATION
  Report Type: Report from Study
  Country: None (occurrence: PA)
  Receive Date: 20200331
  Receipt Date: 20200624
  Transmission Date: 20200713
  Serious: Yes (Death)
  Sender: FDA-Public Use
  Company Number: PA-ABBVIE-20K-125-3345289-00

PATIENT
  Age: 67 Year
  Sex: Male

DRUGS (1)
  1. HUMIRA [Suspect]
     Active Substance: ADALIMUMAB
     Indication: RHEUMATOID ARTHRITIS
     Route: 058
     Dates: start: 20190415, end: 2020

REACTIONS (3)
  - Underweight [Unknown]
  - Blood glucose increased [Fatal]
  - Hypertension [Fatal]

NARRATIVE: CASE EVENT DATE: 20200107
